FAERS Safety Report 8612422-3 (Version None)
Quarter: 2012Q3

REPORT INFORMATION
  Report Type: 
  Country: None (occurrence: None)
  Receive Date: 20120809
  Receipt Date: 20120730
  Transmission Date: 20120928
  Serious: Yes (Other)
  Sender: FDA-Public Use
  Company Number: HA12-228-AE

PATIENT
  Age: 81 Year
  Sex: Male
  Weight: 66.2252 kg

DRUGS (1)
  1. METFORMIN HCL [Suspect]
     Indication: GLUCOSE TOLERANCE IMPAIRED
     Dosage: 1 TALBET BID, ORAL
     Dates: start: 20120101, end: 20120210

REACTIONS (5)
  - PAIN IN EXTREMITY [None]
  - MYALGIA [None]
  - TENDON DISORDER [None]
  - MUSCLE DISORDER [None]
  - FEELING HOT [None]
